FAERS Safety Report 19459361 (Version 1)
Quarter: 2021Q2

REPORT INFORMATION
  Report Type: Spontaneous
  Country: US (occurrence: US)
  Receive Date: 20210624
  Receipt Date: 20210624
  Transmission Date: 20210717
  Serious: Yes (Other)
  Sender: FDA-Public Use
  Company Number: US-ASTRAZENECA-2021A545395

PATIENT
  Age: 50 Year
  Sex: Male
  Weight: 45.4 kg

DRUGS (4)
  1. ALBUTEROL. [Concomitant]
     Active Substance: ALBUTEROL
     Dosage: UNKNOWN
     Route: 065
  2. BRILINTA [Concomitant]
     Active Substance: TICAGRELOR
     Dosage: UNKNOWN
     Route: 048
  3. SYMBICORT [Suspect]
     Active Substance: BUDESONIDE\FORMOTEROL FUMARATE DIHYDRATE
     Indication: CHRONIC OBSTRUCTIVE PULMONARY DISEASE
     Dosage: UNKNOWN, 2 INHALED PUFFS, TWICE DAILY
     Route: 055
     Dates: start: 2019
  4. SYMBICORT [Suspect]
     Active Substance: BUDESONIDE\FORMOTEROL FUMARATE DIHYDRATE
     Indication: EMPHYSEMA
     Dosage: UNKNOWN, 2 INHALED PUFFS, TWICE DAILY
     Route: 055
     Dates: start: 2019

REACTIONS (5)
  - Shock [Recovered/Resolved]
  - Product use issue [Recovered/Resolved]
  - Dyspnoea [Not Recovered/Not Resolved]
  - Throat cancer [Not Recovered/Not Resolved]
  - Product dose omission issue [Not Recovered/Not Resolved]

NARRATIVE: CASE EVENT DATE: 2020
